FAERS Safety Report 21164429 (Version 3)
Quarter: 2024Q2

REPORT INFORMATION
  Report Type: Report from Study
  Country: US (occurrence: US)
  Receive Date: 20220803
  Receipt Date: 20240406
  Transmission Date: 20240716
  Serious: Yes (Other)
  Sender: FDA-Public Use
  Company Number: US-ABBVIE-22K-163-4378954-00

PATIENT
  Sex: Female

DRUGS (3)
  1. SKYRIZI [Suspect]
     Active Substance: RISANKIZUMAB-RZAA
     Indication: Psoriasis
     Route: 058
  2. SKYRIZI [Suspect]
     Active Substance: RISANKIZUMAB-RZAA
     Route: 058
  3. PFIZER-BIONTECH COVID-19 VACCINE [Concomitant]
     Active Substance: TOZINAMERAN
     Indication: COVID-19 immunisation
     Route: 030

REACTIONS (7)
  - Ankle fracture [Unknown]
  - Scab [Recovered/Resolved]
  - Psoriasis [Unknown]
  - Therapeutic response shortened [Unknown]
  - Diabetes mellitus [Unknown]
  - Unevaluable event [Recovering/Resolving]
  - Fungal infection [Unknown]

NARRATIVE: CASE EVENT DATE: 20210101
